FAERS Safety Report 11170593 (Version 1)
Quarter: 2015Q2

REPORT INFORMATION
  Report Type: Spontaneous
  Country: US (occurrence: None)
  Receive Date: 20150515
  Receipt Date: 20150515
  Transmission Date: 20150821
  Serious: Yes (Other)
  Sender: FDA-Public Use
  Company Number: 2015006717

PATIENT
  Age: 68 Year
  Sex: Female
  Weight: 77 kg

DRUGS (7)
  1. CIMZIA [Suspect]
     Active Substance: CERTOLIZUMAB PEGOL
     Indication: RHEUMATOID ARTHRITIS
     Dosage: EV 4 WEEKS; PRE-FILLED SYRINGE
     Route: 058
     Dates: start: 20140306, end: 201409
  2. PROPRANOLOL (PROPRANOLOL HYDROCHLORIDE) [Concomitant]
  3. SYNTHROID [Concomitant]
     Active Substance: LEVOTHYROXINE SODIUM
  4. TRIAMTERENE/HCTZ (HYDROCHLOROTHIAZIDE, TRIAMTERENE) [Concomitant]
  5. PREDNISONE. [Concomitant]
     Active Substance: PREDNISONE
  6. HYDROXYCHLOROQUINE [Concomitant]
     Active Substance: HYDROXYCHLOROQUINE
  7. CELEBREX [Concomitant]
     Active Substance: CELECOXIB

REACTIONS (1)
  - Invasive ductal breast carcinoma [None]

NARRATIVE: CASE EVENT DATE: 201409
